FAERS Safety Report 15615296 (Version 1)
Quarter: 2018Q4

REPORT INFORMATION
  Report Type: Spontaneous
  Country: FR (occurrence: FR)
  Receive Date: 20181114
  Receipt Date: 20181114
  Transmission Date: 20190205
  Serious: Yes (Other)
  Sender: FDA-Public Use
  Company Number: FR-ACCORD-092153

PATIENT
  Age: 6 Year
  Sex: Female

DRUGS (13)
  1. MEROPENEM. [Suspect]
     Active Substance: MEROPENEM
     Indication: PRODUCT USED FOR UNKNOWN INDICATION
     Dosage: INTERMITTENTLY IN MAY 2018 AS WELL AS JULY, AUGUST, SEPTEMBER 2018
     Route: 042
     Dates: start: 201805
  2. ORACILLINE [Suspect]
     Active Substance: PENICILLIN V
     Indication: INFECTION PROPHYLAXIS
     Dosage: UNSPECIFIED
     Route: 048
  3. CICLOSPORIN [Concomitant]
     Active Substance: CYCLOSPORINE
     Route: 048
     Dates: start: 201804, end: 201807
  4. METHOTREXATE. [Suspect]
     Active Substance: METHOTREXATE
     Indication: LYMPHOCYTIC LEUKAEMIA
     Route: 042
     Dates: start: 201805
  5. SPRYCEL [Suspect]
     Active Substance: DASATINIB
     Indication: LYMPHOCYTIC LEUKAEMIA
     Dosage: TREATMENT ALREADY TAKEN FROM NOVEMBER 2017 TO JANUARY 2018
     Route: 048
     Dates: start: 201805
  6. CALCIUM PHOSPHATE DIBASIC/MAGNESIUM GLYCEROPHOSPHATE/PHOSPHORIC ACID/SODIUM PHOSPHATE DIBASIC [Concomitant]
     Route: 048
     Dates: start: 201805
  7. POTASSIUM [Concomitant]
     Active Substance: POTASSIUM
     Indication: PRODUCT USED FOR UNKNOWN INDICATION
     Route: 048
     Dates: start: 201805
  8. ONDANSETRON [Concomitant]
     Active Substance: ONDANSETRON
     Route: 048
     Dates: start: 201805
  9. HYDROCORTISONE. [Suspect]
     Active Substance: HYDROCORTISONE
     Indication: LYMPHOCYTIC LEUKAEMIA
     Route: 042
     Dates: start: 201805
  10. CYTARABINE. [Suspect]
     Active Substance: CYTARABINE
     Indication: LYMPHOCYTIC LEUKAEMIA
     Route: 042
     Dates: start: 201805
  11. ZOVIRAX [Suspect]
     Active Substance: ACYCLOVIR
     Indication: INFECTION PROPHYLAXIS
     Dosage: UNSPECIFIED
     Route: 048
  12. VANCOMYCIN [Suspect]
     Active Substance: VANCOMYCIN
     Indication: PRODUCT USED FOR UNKNOWN INDICATION
     Dosage: INTERMITTENT IN MAY 2018 AS WELL AS JULY, AUGUST, SEPTEMBER 2018
     Route: 042
     Dates: start: 201805
  13. MAGNESIUM PIDOLATE [Concomitant]
     Active Substance: MAGNESIUM PIDOLATE
     Route: 048
     Dates: start: 201805

REACTIONS (1)
  - Enterocolitis haemorrhagic [Not Recovered/Not Resolved]

NARRATIVE: CASE EVENT DATE: 201806
